FAERS Safety Report 7987039-4 (Version None)
Quarter: 2011Q4

REPORT INFORMATION
  Report Type: 
  Country: None (occurrence: None)
  Receive Date: 20111216
  Receipt Date: 20110919
  Transmission Date: 20120403
  Serious: Yes (Other)
  Sender: FDA-Public Use
  Company Number: US-BRISTOL-MYERS SQUIBB COMPANY-16072241

PATIENT
  Age: 48 Year
  Sex: Female
  Weight: 127 kg

DRUGS (3)
  1. ABILIFY [Suspect]
     Indication: DEPRESSION
     Dosage: STARTED 1.5 TO 2 YEARS AGO .STOP FOR 2 WEEKS THEN RESTARTED.AFTER 1WK DISCONTINUED.
  2. DESIPRAMIDE HCL [Suspect]
     Indication: DEPRESSION
  3. KLONOPIN [Suspect]
     Indication: DEPRESSION

REACTIONS (1)
  - TARDIVE DYSKINESIA [None]
